FAERS Safety Report 4489491-8 (Version None)
Quarter: 2004Q4

REPORT INFORMATION
  Report Type: 
  Country: None (occurrence: None)
  Receive Date: 20041101
  Receipt Date: 20041025
  Transmission Date: 20050328
  Serious: Yes (Other)
  Sender: FDA-Public Use
  Company Number: 200420576GDDC

PATIENT
  Sex: 0

DRUGS (1)
  1. KETEK [Suspect]
     Dosage: DOSE: UNK

REACTIONS (1)
  - OPTIC NEURITIS [None]
